FAERS Safety Report 18866534 (Version 1)
Quarter: 2021Q1

REPORT INFORMATION
  Report Type: Spontaneous
  Country: ES (occurrence: ES)
  Receive Date: 20210209
  Receipt Date: 20210209
  Transmission Date: 20210420
  Serious: Yes (Hospitalization, Other)
  Sender: FDA-Public Use
  Company Number: ES-LEADINGPHARMA-ES-2021LEALIT00042

PATIENT
  Age: 17 Year
  Sex: Female

DRUGS (20)
  1. QUETIAPINE. [Concomitant]
     Active Substance: QUETIAPINE
     Route: 065
  2. RISPERIDONE. [Suspect]
     Active Substance: RISPERIDONE
     Indication: THINKING ABNORMAL
  3. LORAZEPAM. [Suspect]
     Active Substance: LORAZEPAM
     Indication: AFFECT LABILITY
     Route: 065
  4. LORAZEPAM. [Suspect]
     Active Substance: LORAZEPAM
     Indication: INSOMNIA
     Route: 065
  5. MAPROTILINE [Suspect]
     Active Substance: MAPROTILINE
     Indication: THINKING ABNORMAL
  6. DIPOTASSIUM CLORAZEPATE [Interacting]
     Active Substance: CLORAZEPATE DIPOTASSIUM
     Route: 065
  7. RISPERIDONE. [Suspect]
     Active Substance: RISPERIDONE
     Indication: INSOMNIA
  8. VENLAFAXINE [Suspect]
     Active Substance: VENLAFAXINE HYDROCHLORIDE
     Indication: PRODUCT USED FOR UNKNOWN INDICATION
     Route: 065
  9. QUETIAPINE. [Concomitant]
     Active Substance: QUETIAPINE
     Route: 065
  10. HALOPERIDOL. [Interacting]
     Active Substance: HALOPERIDOL
     Route: 030
  11. LORAZEPAM. [Suspect]
     Active Substance: LORAZEPAM
     Indication: DEPRESSED MOOD
     Route: 065
  12. MAPROTILINE [Suspect]
     Active Substance: MAPROTILINE
     Indication: DEPRESSED MOOD
  13. RISPERIDONE. [Suspect]
     Active Substance: RISPERIDONE
     Indication: AFFECT LABILITY
     Route: 065
  14. QUETIAPINE. [Concomitant]
     Active Substance: QUETIAPINE
     Route: 065
  15. MAPROTILINE [Suspect]
     Active Substance: MAPROTILINE
     Indication: AFFECT LABILITY
     Route: 065
  16. MAPROTILINE [Suspect]
     Active Substance: MAPROTILINE
     Indication: INSOMNIA
  17. RISPERIDONE. [Suspect]
     Active Substance: RISPERIDONE
     Indication: DEPRESSED MOOD
     Route: 065
  18. QUETIAPINE. [Concomitant]
     Active Substance: QUETIAPINE
     Route: 065
  19. PAROXETINE. [Concomitant]
     Active Substance: PAROXETINE
     Indication: PRODUCT USED FOR UNKNOWN INDICATION
     Route: 065
  20. LORAZEPAM. [Suspect]
     Active Substance: LORAZEPAM
     Indication: THINKING ABNORMAL

REACTIONS (7)
  - Mutism [Recovered/Resolved]
  - Urinary incontinence [Recovered/Resolved]
  - Drug ineffective [Unknown]
  - Agitation [Recovered/Resolved]
  - Product use in unapproved indication [Unknown]
  - Pyrexia [Recovered/Resolved]
  - Condition aggravated [Recovered/Resolved]
